FAERS Safety Report 12865316 (Version 4)
Quarter: 2016Q4

REPORT INFORMATION
  Report Type: Spontaneous
  Country: JP (occurrence: JP)
  Receive Date: 20161020
  Receipt Date: 20161117
  Transmission Date: 20170207
  Serious: Yes (Death, Hospitalization, Other)
  Sender: FDA-Public Use
  Company Number: JP-ASTELLAS-2016JP017446AA

PATIENT
  Age: 82 Year
  Sex: Male
  Weight: 59 kg

DRUGS (14)
  1. XTANDI [Suspect]
     Active Substance: ENZALUTAMIDE
     Route: 048
     Dates: start: 20160920, end: 20161008
  2. ADSORBIN [Concomitant]
     Active Substance: ALUMINUM SILICATE
     Indication: DIARRHOEA
     Route: 048
     Dates: start: 20160928, end: 20161008
  3. MAGMITT [Concomitant]
     Active Substance: MAGNESIUM OXIDE
     Indication: CONSTIPATION
     Route: 048
     Dates: start: 20151116, end: 20161008
  4. PREDNISOLONE. [Concomitant]
     Active Substance: PREDNISOLONE
     Route: 048
     Dates: start: 20120331, end: 20161009
  5. HUMALOG [Concomitant]
     Active Substance: INSULIN LISPRO
     Indication: DIABETES MELLITUS
     Dosage: 10-10-10-0, THRICE DAILY
     Route: 058
     Dates: start: 20140521, end: 20161008
  6. XTANDI [Suspect]
     Active Substance: ENZALUTAMIDE
     Indication: HORMONE-REFRACTORY PROSTATE CANCER
     Route: 048
     Dates: start: 20160915, end: 20160919
  7. ALPHAGAN P [Concomitant]
     Active Substance: BRIMONIDINE TARTRATE
     Indication: CATARACT
     Dosage: UNK UNK, TWICE DAILY
     Route: 047
     Dates: end: 20161008
  8. ALBUMIN TANNATE [Concomitant]
     Active Substance: ALBUMIN BOVINE\TANNIC ACID
     Indication: DIARRHOEA
     Dosage: 0.5 G, THRICE DAILY
     Route: 048
     Dates: start: 20160928, end: 20161008
  9. FLUTAMIDE. [Concomitant]
     Active Substance: FLUTAMIDE
     Indication: PROSTATE CANCER
     Dosage: UNK UNK, UNKNOWN FREQ.
     Route: 048
     Dates: start: 2016, end: 20160913
  10. PREDNISOLONE. [Concomitant]
     Active Substance: PREDNISOLONE
     Indication: IDIOPATHIC INTERSTITIAL PNEUMONIA
     Dosage: UNK UNK, UNKNOWN FREQ.
  11. TATHION [Concomitant]
     Active Substance: GLUTATHIONE
     Indication: GLAUCOMA
     Dosage: UNK UNK, 4 TIMES DAILY
     Route: 047
     Dates: end: 20161008
  12. XALATAN [Concomitant]
     Active Substance: LATANOPROST
     Indication: GLAUCOMA
     Dosage: UNK UNK, ONCE DAILY
     Route: 047
     Dates: end: 20161008
  13. MIYA-BM [Concomitant]
     Active Substance: CLOSTRIDIUM BUTYRICUM SPORES STRAIN M-55
     Indication: DIARRHOEA
     Route: 048
     Dates: start: 20160928, end: 20161009
  14. AMBROXOL HYDROCHLORIDE [Concomitant]
     Active Substance: AMBROXOL HYDROCHLORIDE
     Indication: IDIOPATHIC INTERSTITIAL PNEUMONIA
     Route: 048
     Dates: start: 20130408, end: 20161009

REACTIONS (3)
  - Diarrhoea [Fatal]
  - Intentional underdose [Unknown]
  - Depressed level of consciousness [Not Recovered/Not Resolved]

NARRATIVE: CASE EVENT DATE: 20160915
